FAERS Safety Report 4878548-5 (Version None)
Quarter: 2006Q1

REPORT INFORMATION
  Report Type: 
  Country: None (occurrence: None)
  Receive Date: 20060109
  Receipt Date: 20060109
  Transmission Date: 20060701
  Serious: Yes (Hospitalization)
  Sender: FDA-Public Use
  Company Number: None

PATIENT
  Sex: Male
  Weight: 106.2 kg

DRUGS (13)
  1. IMATINIB MESYLATE 100MG CAPSULES, NOVARTIS (GLEEVEC) [Suspect]
     Indication: GLIOBLASTOMA MULTIFORME
     Dosage: 400MG DAILY PO X 8 DAYS
     Route: 048
     Dates: start: 20051222
  2. TEMOZOLOMIDE, SCHERING-PLOUGH [Suspect]
     Indication: GLIOBLASTOMA MULTIFORME
     Dosage: 320MG DAILY PO X 5 DAYS  (THERAPY DATES: SEE IMAGE)
     Route: 048
  3. DECADRON [Concomitant]
  4. PROTONIX [Concomitant]
  5. TEGRETOL [Concomitant]
  6. POTASSIUM CHLORIDE [Concomitant]
  7. ALLEGRA [Concomitant]
  8. SINGULAIR [Concomitant]
  9. RITALIN [Concomitant]
  10. SEPTRA DS [Concomitant]
  11. LOVENOX [Concomitant]
  12. ALBUTEROL [Concomitant]
  13. ATROVENT [Concomitant]

REACTIONS (6)
  - ASTHMA [None]
  - ATELECTASIS [None]
  - BONE DISORDER [None]
  - CHEST X-RAY ABNORMAL [None]
  - DISEASE PROGRESSION [None]
  - LUNG INFILTRATION [None]
